FAERS Safety Report 8431110-X (Version None)
Quarter: 2012Q2

REPORT INFORMATION
  Report Type: 
  Country: None (occurrence: None)
  Receive Date: 20120612
  Receipt Date: 20120604
  Transmission Date: 20120825
  Serious: Yes (Hospitalization, Other)
  Sender: FDA-Public Use
  Company Number: US-ABBOTT-11P-163-0701399-00

PATIENT
  Sex: Female
  Weight: 65.83 kg

DRUGS (8)
  1. SYNTHROID [Suspect]
     Indication: THYROID DISORDER
     Dates: start: 20030101, end: 20030101
  2. SYNTHROID [Suspect]
     Indication: THYROIDECTOMY
     Dosage: 75 MCG 5 DAYS A WEEK AND 50 MCG TWO DAYS A WEEK ON MONDAYS AND FRIDAYS
     Dates: start: 20100101, end: 20110101
  3. SYNTHROID [Suspect]
     Dosage: 75 MCG 5 DAYS A WEEK AND 50 MCG TWO DAYS A WEEK ON MONDAYS AND FRIDAYS
  4. SYNTHROID [Suspect]
     Indication: THYROID DISORDER
     Dates: start: 20110125, end: 20110125
  5. ASPIRIN [Concomitant]
     Indication: BLOOD CHOLESTEROL INCREASED
  6. BENICAR [Suspect]
     Indication: BLOOD PRESSURE
     Dates: start: 20100101, end: 20110101
  7. SYNTHROID [Suspect]
     Indication: THYROID DISORDER
     Dates: start: 19950101, end: 20100101
  8. BENICAR [Suspect]

REACTIONS (15)
  - HYPOTENSION [None]
  - PRURITUS GENERALISED [None]
  - FEELING HOT [None]
  - AUTOIMMUNE THYROIDITIS [None]
  - COUGH [None]
  - THROAT IRRITATION [None]
  - TRI-IODOTHYRONINE FREE DECREASED [None]
  - BLOOD PRESSURE INCREASED [None]
  - HYPERTENSION [None]
  - ONYCHOCLASIS [None]
  - THYROID FUNCTION TEST ABNORMAL [None]
  - DYSGEUSIA [None]
  - PALPITATIONS [None]
  - ALOPECIA [None]
  - PRURITUS [None]
